FAERS Safety Report 20881718 (Version 1)
Quarter: 2022Q2

REPORT INFORMATION
  Report Type: Spontaneous
  Country: PL (occurrence: PL)
  Receive Date: 20220527
  Receipt Date: 20220527
  Transmission Date: 20220721
  Serious: Yes (Other)
  Sender: FDA-Public Use
  Company Number: None

PATIENT
  Age: 78 Year
  Sex: Female
  Weight: 51 kg

DRUGS (5)
  1. OXALIPLATIN [Suspect]
     Active Substance: OXALIPLATIN
     Indication: Colon cancer
     Dosage: 500 MG , FREQUENCY TIME : 24 HOURS
     Route: 042
     Dates: start: 20180702, end: 20180702
  2. FLUOROURACIL [Suspect]
     Active Substance: FLUOROURACIL
     Indication: Colon cancer
     Dosage: 580 MG , FREQUENCY TIME : 24 HOURS , DURATION : 2 DAYS
     Route: 040
     Dates: start: 20180702, end: 20180704
  3. FLUOROURACIL [Suspect]
     Active Substance: FLUOROURACIL
     Dosage: 1740 MG , FREQUENCY TIME : 24 HOURS , DURATION : 2 DAYS
     Route: 041
     Dates: start: 20180702, end: 20180704
  4. LEUCOVORIN [Suspect]
     Active Substance: LEUCOVORIN
     Indication: Colon cancer
     Dosage: 290 MG , FREQUENCY TIME : 24 HOURS , DURATION : 2 DAYS
     Route: 042
     Dates: start: 20180702, end: 20180704
  5. BEVACIZUMAB [Concomitant]
     Active Substance: BEVACIZUMAB
     Indication: Colon cancer
     Dosage: 500 MG ,  FREQUENCY TIME : 24 HOURS
     Route: 042
     Dates: start: 20180702, end: 20180702

REACTIONS (1)
  - Neutropenia [Unknown]

NARRATIVE: CASE EVENT DATE: 20180723
